FAERS Safety Report 5963411-9 (Version None)
Quarter: 2008Q4

REPORT INFORMATION
  Report Type: 
  Country: None (occurrence: None)
  Receive Date: 20081121
  Receipt Date: 20081121
  Transmission Date: 20090506
  Serious: Yes (Life-Threatening, Hospitalization)
  Sender: FDA-Public Use
  Company Number: None

PATIENT
  Age: 94 Year
  Sex: Female

DRUGS (7)
  1. ENALAPRIL MALEATE [Suspect]
     Indication: HYPERTENSION
     Dosage: 10MG PO QD
     Route: 048
     Dates: start: 20060301, end: 20080801
  2. HYDROCHLOROTHIAZIDE [Concomitant]
  3. ATORVASTATIN [Concomitant]
  4. METOPROLOL TARTRATE [Concomitant]
  5. NITROGLYCERIN [Concomitant]
  6. CLOPIDOGREL [Concomitant]
  7. OMEPRAZOLE [Concomitant]

REACTIONS (2)
  - MOUTH HAEMORRHAGE [None]
  - SWOLLEN TONGUE [None]
